FAERS Safety Report 15844740 (Version 2)
Quarter: 2019Q1

REPORT INFORMATION
  Report Type: Spontaneous
  Country: NL (occurrence: NL)
  Receive Date: 20190118
  Receipt Date: 20190316
  Transmission Date: 20190417
  Serious: Yes (Death, Other)
  Sender: FDA-Public Use
  Company Number: NL-TERSERA THERAPEUTICS LLC-TSR2017000149

PATIENT

DRUGS (1)
  1. ZOLADEX [Suspect]
     Active Substance: GOSERELIN ACETATE
     Indication: PROSTATE CANCER
     Dosage: 10.8 MILLIGRAM, UNK
     Route: 058
     Dates: start: 20140410

REACTIONS (4)
  - Death [Fatal]
  - Urinary retention [Not Recovered/Not Resolved]
  - Malignant neoplasm progression [Not Recovered/Not Resolved]
  - Prostate cancer metastatic [Not Recovered/Not Resolved]

NARRATIVE: CASE EVENT DATE: 20170709
